FAERS Safety Report 6126569-7 (Version None)
Quarter: 2009Q1

REPORT INFORMATION
  Report Type: 
  Country: None (occurrence: None)
  Receive Date: 20090320
  Receipt Date: 20090310
  Transmission Date: 20090719
  Serious: Yes (Other)
  Sender: FDA-Public Use
  Company Number: US-PFIZER INC-2006084521

PATIENT
  Sex: Female
  Weight: 58 kg

DRUGS (8)
  1. PROVERA [Suspect]
     Indication: HORMONE REPLACEMENT THERAPY
     Dosage: UNK
     Route: 048
     Dates: start: 19850101, end: 19960101
  2. PROVERA [Suspect]
     Indication: MENOPAUSE
  3. PREMARIN [Suspect]
     Indication: HORMONE REPLACEMENT THERAPY
     Dosage: UNK
     Route: 065
     Dates: start: 19850101, end: 19960101
  4. PREMARIN [Suspect]
     Indication: MENOPAUSE
  5. PREMPRO [Suspect]
     Indication: HORMONE REPLACEMENT THERAPY
     Dosage: 0.625MG/2.5MG
     Route: 065
     Dates: start: 19960101, end: 20020101
  6. PREMPRO [Suspect]
     Indication: MENOPAUSE
  7. CYCRIN [Suspect]
     Indication: HORMONE REPLACEMENT THERAPY
     Route: 065
  8. SYNTHROID [Concomitant]
     Indication: HYPOTHYROIDISM
     Dosage: 50 UG, UNK
     Dates: start: 19990101

REACTIONS (1)
  - BREAST CANCER FEMALE [None]
